FAERS Safety Report 15988840 (Version 1)
Quarter: 2019Q1

REPORT INFORMATION
  Report Type: Other
  Country: ES (occurrence: ES)
  Receive Date: 20190221
  Receipt Date: 20190221
  Transmission Date: 20190418
  Serious: Yes (Hospitalization, Other)
  Sender: FDA-Public Use
  Company Number: ES-APOTEX-2019AP007828

PATIENT
  Age: 95 Year
  Sex: Female

DRUGS (2)
  1. PARACETAMOL [Suspect]
     Active Substance: ACETAMINOPHEN
     Indication: PRODUCT USED FOR UNKNOWN INDICATION
     Dosage: UNK
     Route: 048
     Dates: start: 20180108, end: 20180115
  2. OMEPRAZOLE. [Suspect]
     Active Substance: OMEPRAZOLE
     Indication: PRODUCT USED FOR UNKNOWN INDICATION
     Dosage: 1 DF, PER DAY (1 CP DIA)
     Route: 048
     Dates: start: 20180108, end: 20180115

REACTIONS (4)
  - Hepatic infarction [Recovered/Resolved]
  - Mesenteric artery thrombosis [Recovered/Resolved]
  - Splenic infarction [Recovered/Resolved]
  - Truncus coeliacus thrombosis [Recovered/Resolved]

NARRATIVE: CASE EVENT DATE: 20180115
